FAERS Safety Report 24588902 (Version 1)
Quarter: 2024Q4

REPORT INFORMATION
  Report Type: Spontaneous
  Country: GB (occurrence: GB)
  Receive Date: 20241107
  Receipt Date: 20241107
  Transmission Date: 20250114
  Serious: Yes (Life-Threatening, Hospitalization, Other)
  Sender: PFIZER
  Company Number: None

PATIENT
  Age: 27 Year
  Sex: Female

DRUGS (3)
  1. PROSTIN E2 [Suspect]
     Active Substance: DINOPROSTONE
     Indication: Labour induction
     Dosage: 1 MG
     Dates: start: 20241103, end: 20241103
  2. OXYTOCIN [Suspect]
     Active Substance: OXYTOCIN
     Indication: Failed induction of labour
     Dosage: 10IU IN 500MLS AS PER PROTOCOL
     Dates: start: 20241104, end: 20241104
  3. FOLIC ACID [Concomitant]
     Active Substance: FOLIC ACID
     Indication: Vitamin supplementation

REACTIONS (1)
  - Haemorrhage [Recovered/Resolved]

NARRATIVE: CASE EVENT DATE: 20241104
